FAERS Safety Report 16882417 (Version 1)
Quarter: 2019Q4

REPORT INFORMATION
  Report Type: Report from Study
  Country: US (occurrence: US)
  Receive Date: 20191003
  Receipt Date: 20191003
  Transmission Date: 20200122
  Serious: Yes (Other)
  Sender: FDA-Public Use
  Company Number: US-JAZZ-2019-US-007956

PATIENT
  Age: 40 Year
  Sex: Female

DRUGS (11)
  1. DICLOFENAC POTASSIUM. [Concomitant]
     Active Substance: DICLOFENAC POTASSIUM
  2. IBUPROFEN. [Concomitant]
     Active Substance: IBUPROFEN
  3. XYREM [Suspect]
     Active Substance: SODIUM OXYBATE
     Indication: CATAPLEXY
     Dosage: UNKNOWN DOSE
     Route: 048
     Dates: start: 201906
  4. POLYETHYLENE GLYCOL [Concomitant]
     Active Substance: POLYETHYLENE GLYCOLS
  5. ADDERALL [Concomitant]
     Active Substance: AMPHETAMINE ASPARTATE\AMPHETAMINE SULFATE\DEXTROAMPHETAMINE SACCHARATE\DEXTROAMPHETAMINE SULFATE
  6. EFFEXOR [Concomitant]
     Active Substance: VENLAFAXINE HYDROCHLORIDE
  7. VITAMIN D3 [Concomitant]
     Active Substance: CHOLECALCIFEROL
  8. XYREM [Suspect]
     Active Substance: SODIUM OXYBATE
     Indication: NARCOLEPSY
     Dosage: 2.25 G, BID
     Route: 048
     Dates: start: 201906, end: 201906
  9. COLACE [Concomitant]
     Active Substance: DOCUSATE SODIUM
  10. FISH OIL CONCENTRATE [Concomitant]
     Active Substance: FISH OIL
  11. ACETAMINOPHEN. [Concomitant]
     Active Substance: ACETAMINOPHEN

REACTIONS (14)
  - Somnambulism [Not Recovered/Not Resolved]
  - Depression [Not Recovered/Not Resolved]
  - Memory impairment [Not Recovered/Not Resolved]
  - Confusional state [Not Recovered/Not Resolved]
  - Hypopnoea [Unknown]
  - Cataplexy [Not Recovered/Not Resolved]
  - Anxiety [Not Recovered/Not Resolved]
  - Somnolence [Not Recovered/Not Resolved]
  - Lethargy [Not Recovered/Not Resolved]
  - Crying [Not Recovered/Not Resolved]
  - Dizziness [Not Recovered/Not Resolved]
  - Decreased appetite [Not Recovered/Not Resolved]
  - Motion sickness [Not Recovered/Not Resolved]
  - Nausea [Not Recovered/Not Resolved]

NARRATIVE: CASE EVENT DATE: 2019
